FAERS Safety Report 5107100-1 (Version None)
Quarter: 2006Q3

REPORT INFORMATION
  Report Type: 
  Country: None (occurrence: None)
  Receive Date: 20060913
  Receipt Date: 20060905
  Transmission Date: 20061208
  Serious: Yes (Hospitalization)
  Sender: FDA-Public Use
  Company Number: MEDI-0004854

PATIENT
  Age: 62 Year
  Sex: Female
  Weight: 81.6475 kg

DRUGS (27)
  1. ETHYOL [Suspect]
     Indication: RADIOTHERAPY
     Dosage: SEE IMAGE
     Route: 058
     Dates: start: 20060724, end: 20060808
  2. ETHYOL [Suspect]
     Indication: RADIOTHERAPY
     Dosage: SEE IMAGE
     Route: 058
     Dates: start: 20060814, end: 20060814
  3. RADIATION THERAPY [Concomitant]
  4. CISPLATIN [Concomitant]
  5. ETOPOSIDE [Concomitant]
  6. MULTIVITAMIN [Concomitant]
  7. ACTOSE (PIOGLITAZONE) [Concomitant]
  8. LANTUS [Concomitant]
  9. METFORMIN HCL [Concomitant]
  10. DIOVAN [Concomitant]
  11. LASIX [Concomitant]
  12. SYNTHROID [Concomitant]
  13. CALCIUM GLUCONATE [Concomitant]
  14. VITAMIN D [Concomitant]
  15. ASPIRIN [Concomitant]
  16. LIPITOR [Concomitant]
  17. CELEXA [Concomitant]
  18. HUMALOG [Concomitant]
  19. IRON [Concomitant]
  20. NEXIUM [Concomitant]
  21. ZANTAC [Concomitant]
  22. NIFEDIPINE [Concomitant]
  23. SPIRIVA [Concomitant]
  24. ALBUTEROL [Concomitant]
  25. DALMANE [Concomitant]
  26. OXYCONTIN [Concomitant]
  27. CARAFATE [Concomitant]

REACTIONS (20)
  - ASTHENIA [None]
  - CHILLS [None]
  - DRUG ERUPTION [None]
  - FATIGUE [None]
  - FEBRILE NEUTROPENIA [None]
  - HEADACHE [None]
  - HYPERSENSITIVITY [None]
  - HYPOKALAEMIA [None]
  - HYPOTENSION [None]
  - HYPOXIA [None]
  - INJECTION SITE ERYTHEMA [None]
  - LEUKOPENIA [None]
  - LOBAR PNEUMONIA [None]
  - MYALGIA [None]
  - OESOPHAGEAL RUPTURE [None]
  - PHARYNGOLARYNGEAL PAIN [None]
  - THROAT TIGHTNESS [None]
  - THROMBOCYTOPENIA [None]
  - TREMOR [None]
  - VOMITING PROJECTILE [None]
